FAERS Safety Report 5934761-7 (Version None)
Quarter: 2008Q4

REPORT INFORMATION
  Report Type: 
  Country: None (occurrence: None)
  Receive Date: 20081029
  Receipt Date: 20081017
  Transmission Date: 20090506
  Serious: Yes (Death, Other)
  Sender: FDA-Public Use
  Company Number: KE-B.I. PHARMACEUTICALS,INC./RIDGEFIELD-2008-DE-06185GD

PATIENT

DRUGS (4)
  1. NEVIRAPINE [Suspect]
     Indication: HUMAN IMMUNODEFICIENCY VIRUS TRANSMISSION
     Dosage: 2 MG/KG, 6 MG IF BIRTH WEIGHT }2.5 KG
     Route: 048
  2. NEVIRAPINE [Suspect]
     Indication: PROPHYLAXIS
     Route: 064
  3. ZIDOVUDINE [Suspect]
     Indication: HUMAN IMMUNODEFICIENCY VIRUS TRANSMISSION
     Route: 064
  4. ZIDOVUDINE [Suspect]
     Indication: PROPHYLAXIS

REACTIONS (3)
  - DEHYDRATION [None]
  - DIARRHOEA [None]
  - HIV INFECTION [None]
